FAERS Safety Report 11941082 (Version 1)
Quarter: 2016Q1

REPORT INFORMATION
  Report Type: Spontaneous
  Country: US (occurrence: US)
  Receive Date: 20160122
  Receipt Date: 20160122
  Transmission Date: 20160526
  Serious: Yes (Death, Other)
  Sender: FDA-Public Use
  Company Number: US-AKORN PHARMACEUTICALS-2016AKN00038

PATIENT
  Age: 51 Year
  Sex: Female

DRUGS (4)
  1. PLATELETS [Concomitant]
     Active Substance: HUMAN PLATELET, ALLOGENIC
  2. CRYOPRECIPITATE [Concomitant]
     Active Substance: ANTIHEMOPHILIC FACTOR HUMAN\FIBRINOGEN HUMAN\FACTOR XIII CONCENTRATE (HUMAN)\VON WILLEBRAND FACTOR HUMAN
  3. TRANEXAMIC ACID. [Suspect]
     Active Substance: TRANEXAMIC ACID
     Indication: COAGULOPATHY
     Route: 042
  4. FRESH FROZEN PLASMA [Concomitant]
     Active Substance: HUMAN PLASMA

REACTIONS (2)
  - Thrombosis [Not Recovered/Not Resolved]
  - Pulseless electrical activity [Fatal]
